FAERS Safety Report 5018265-4 (Version None)
Quarter: 2006Q2

REPORT INFORMATION
  Report Type: 
  Country: None (occurrence: None)
  Receive Date: 20060530
  Receipt Date: 20060516
  Transmission Date: 20061013
  Serious: Yes (Hospitalization, Other)
  Sender: FDA-Public Use
  Company Number: 2006053515

PATIENT
  Age: 57 Year
  Sex: Male
  Weight: 95.2554 kg

DRUGS (14)
  1. BEXTRA [Suspect]
     Indication: INFLAMMATION
     Dosage: 40 MG (20 MG, 2 IN 1 D), ORAL
     Route: 048
     Dates: start: 20041222, end: 20041223
  2. ALL OTHER THERAPEUTIC PRODUCTS [Concomitant]
  3. VALSARTAN [Concomitant]
  4. OMEPRAZOLE MAGNESIUM (OMEPRAZOLE MAGNESIUM) [Concomitant]
  5. METFORMIN [Concomitant]
  6. TEMAZEPAM [Concomitant]
  7. ACETAMINOPHEN [Concomitant]
  8. RAMIPRIL [Concomitant]
  9. LANSOPRAZOLE [Concomitant]
  10. FERROUS GLUCONATE     (FERROUS GLUCONATE) [Concomitant]
  11. CITALOPRAM HYDROBROMIDE [Concomitant]
  12. BISOPROLOL FUMARATE [Concomitant]
  13. ATORVASTATIN CALCIUM [Concomitant]
  14. LORAZEPAM [Concomitant]

REACTIONS (5)
  - BLOOD URINE PRESENT [None]
  - BRAIN DAMAGE [None]
  - CEREBROVASCULAR ACCIDENT [None]
  - HAEMORRHAGE [None]
  - RASH [None]
